FAERS Safety Report 4624886-0 (Version None)
Quarter: 2005Q2

REPORT INFORMATION
  Report Type: 
  Country: None (occurrence: None)
  Receive Date: 20050401
  Receipt Date: 20040726
  Transmission Date: 20051028
  Serious: Yes (Death, Hospitalization)
  Sender: FDA-Public Use
  Company Number: JP-BRISTOL-MYERS SQUIBB COMPANY-12650214

PATIENT
  Age: 66 Year
  Sex: Male
  Weight: 52 kg

DRUGS (6)
  1. PACLITAXEL [Suspect]
     Indication: SMALL CELL LUNG CANCER STAGE UNSPECIFIED
     Dosage: START DATE:  22-JUN-2004.  MG/BODY (100MG/MM2)
     Route: 042
     Dates: start: 20040721, end: 20040721
  2. GASTER D [Concomitant]
     Indication: GASTRITIS
     Dates: start: 20040504, end: 20040909
  3. AMARYL [Concomitant]
     Indication: DIABETES MELLITUS NON-INSULIN-DEPENDENT
     Dates: start: 20040111, end: 20040724
  4. PURSENNID [Concomitant]
     Indication: CONSTIPATION
     Dosage: POTION RESTARTED: 25JUL04
     Dates: start: 20040622, end: 20040724
  5. ISODINE [Concomitant]
     Indication: INFECTION
     Dosage: GARGLE: DILUTED 15-30 TIMES, SEVERAL TIMES A DAY.
     Dates: start: 20040630, end: 20040908
  6. DEXAMETHASONE [Concomitant]
     Indication: PREMEDICATION

REACTIONS (4)
  - DISSEMINATED TUBERCULOSIS [None]
  - INTERSTITIAL LUNG DISEASE [None]
  - RESPIRATORY FAILURE [None]
  - SMALL CELL LUNG CANCER STAGE UNSPECIFIED [None]
